FAERS Safety Report 26099407 (Version 1)
Quarter: 2025Q4

REPORT INFORMATION
  Report Type: Report from Study
  Country: US (occurrence: US)
  Receive Date: 20251128
  Receipt Date: 20251128
  Transmission Date: 20260117
  Serious: Yes (Other)
  Sender: JOHNSON AND JOHNSON
  Company Number: US-JNJFOC-20251173646

PATIENT
  Age: 3 Decade
  Sex: Female

DRUGS (4)
  1. SPRAVATO [Suspect]
     Active Substance: ESKETAMINE
     Indication: Depression
     Dosage: ^^84 MG, 15 TOTAL DOSES^^
     Route: 045
     Dates: start: 20240820, end: 20241104
  2. SPRAVATO [Suspect]
     Active Substance: ESKETAMINE
     Dosage: ^^112 MG, 1 TOTAL DOSE^^
     Route: 045
     Dates: start: 20241112, end: 20241112
  3. SPRAVATO [Suspect]
     Active Substance: ESKETAMINE
     Dosage: ^^84 MG, 30 TOTAL DOSES^^
     Route: 045
     Dates: start: 20241118, end: 20250911
  4. SPRAVATO [Suspect]
     Active Substance: ESKETAMINE
     Dosage: ^^56 MG, 1 TOTAL DOSE^^
     Route: 045
     Dates: start: 20240819, end: 20240819

REACTIONS (2)
  - Multiple sclerosis [Unknown]
  - Colon cancer [Unknown]
